FAERS Safety Report 21232639 (Version 1)
Quarter: 2022Q3

REPORT INFORMATION
  Report Type: Spontaneous
  Country: US (occurrence: None)
  Receive Date: 20220818
  Receipt Date: 20220818
  Transmission Date: 20221027
  Serious: Yes (Life-Threatening)
  Sender: FDA-Public Use
  Company Number: None

PATIENT
  Age: 58 Year
  Sex: Female

DRUGS (1)
  1. PROCRIT [Suspect]
     Active Substance: ERYTHROPOIETIN
     Dosage: INJECT 10,000 UNTIS  OTHER SUBCUTANEOUS?
     Route: 058
     Dates: start: 20220804

REACTIONS (2)
  - Seizure [None]
  - Cardiac disorder [None]

NARRATIVE: CASE EVENT DATE: 20220818
